APPROVED DRUG PRODUCT: EZETIMIBE AND SIMVASTATIN
Active Ingredient: EZETIMIBE; SIMVASTATIN
Strength: 10MG;10MG
Dosage Form/Route: TABLET;ORAL
Application: A200082 | Product #001 | TE Code: AB
Applicant: AUROBINDO PHARMA USA INC
Approved: Dec 17, 2020 | RLD: No | RS: No | Type: RX